FAERS Safety Report 16974631 (Version 1)
Quarter: 2019Q4

REPORT INFORMATION
  Report Type: Spontaneous
  Country: US (occurrence: US)
  Receive Date: 20190913
  Receipt Date: 20190913
  Transmission Date: 20200122
  Serious: No
  Sender: FDA-Public Use
  Company Number: None

PATIENT
  Age: 76 Year
  Sex: Male

DRUGS (1)
  1. ERLEADA [Suspect]
     Active Substance: APALUTAMIDE
     Route: 048
     Dates: start: 201906, end: 201908

REACTIONS (5)
  - Nervousness [None]
  - Hypertension [None]
  - Therapy cessation [None]
  - Flatulence [None]
  - Abdominal discomfort [None]

NARRATIVE: CASE EVENT DATE: 20190913
